FAERS Safety Report 25956608 (Version 1)
Quarter: 2025Q4

REPORT INFORMATION
  Report Type: Report from Study
  Country: CA (occurrence: CA)
  Receive Date: 20251024
  Receipt Date: 20251024
  Transmission Date: 20260118
  Serious: Yes (Death)
  Sender: IPSEN BIOPHARMACEUTICALS, INC.
  Company Number: CA-IPSEN Group, Research and Development-2025-26249

PATIENT
  Age: 63 Year
  Sex: Male

DRUGS (6)
  1. LANREOTIDE ACETATE [Suspect]
     Active Substance: LANREOTIDE ACETATE
     Indication: Gastroenteropancreatic neuroendocrine tumour disease
     Dosage: DEEP SUBCUTANEOUS
     Route: 058
     Dates: start: 20211210, end: 20241204
  2. DEXAMETHASONE [Concomitant]
     Active Substance: DEXAMETHASONE
  3. ZOPICLONE [Concomitant]
     Active Substance: ZOPICLONE
  4. FUROSEMIDE [Concomitant]
     Active Substance: FUROSEMIDE
  5. OLANZAPINE [Concomitant]
     Active Substance: OLANZAPINE
  6. LANSOPRAZOLE [Concomitant]
     Active Substance: LANSOPRAZOLE

REACTIONS (2)
  - Death [Fatal]
  - Off label use [Unknown]

NARRATIVE: CASE EVENT DATE: 20211212
